FAERS Safety Report 8785654 (Version 1)
Quarter: 2012Q4

REPORT INFORMATION
  Report Type: 
  Country: US (occurrence: US)
  Receive Date: 20120914
  Receipt Date: 20120914
  Transmission Date: 20130627
  Serious: Yes (Hospitalization)
  Sender: FDA-Public Use
  Company Number: US-ROXANE LABORATORIES, INC.-2012-RO-01827RO

PATIENT
  Age: 40 Year
  Sex: Female

DRUGS (8)
  1. ZIDOVUDINE [Suspect]
     Indication: HIV INFECTION
  2. RALTEGRAVIR [Suspect]
     Indication: HIV INFECTION
  3. LAMIVUDINE [Suspect]
     Indication: HIV INFECTION
  4. METOPROLOL [Suspect]
  5. HYDROCHLOROTHIAZIDE [Suspect]
  6. OMEPRAZOLE [Suspect]
  7. INSULIN DETEMIR [Suspect]
  8. PIOGLITAZONE [Suspect]

REACTIONS (4)
  - Lactic acidosis [Recovered/Resolved]
  - Renal failure acute [Unknown]
  - Anuria [Unknown]
  - Hypotension [Unknown]
